FAERS Safety Report 15808207 (Version 1)
Quarter: 2019Q1

REPORT INFORMATION
  Report Type: Spontaneous
  Country: FR (occurrence: FR)
  Receive Date: 20190110
  Receipt Date: 20190110
  Transmission Date: 20190417
  Serious: Yes (Disabling)
  Sender: FDA-Public Use
  Company Number: FR-PROVELL PHARMACEUTICALS-2061056

PATIENT
  Age: 82 Year
  Sex: Female

DRUGS (1)
  1. EUTHYROX [Suspect]
     Active Substance: LEVOTHYROXINE SODIUM
     Indication: THYROID CANCER
     Dates: start: 201706, end: 201708

REACTIONS (7)
  - Drug intolerance [None]
  - Back pain [None]
  - Pain in extremity [None]
  - Muscle atrophy [None]
  - Disability [None]
  - Fatigue [None]
  - Musculoskeletal pain [None]

NARRATIVE: CASE EVENT DATE: 2017
